FAERS Safety Report 7328128-7 (Version None)
Quarter: 2011Q1

REPORT INFORMATION
  Report Type: 
  Country: None (occurrence: None)
  Receive Date: 20110216
  Receipt Date: 20110207
  Transmission Date: 20110831
  Serious: Yes (Hospitalization)
  Sender: FDA-Public Use
  Company Number: WSDF_00746

PATIENT
  Sex: Male
  Weight: 101 kg

DRUGS (11)
  1. METFORMIN [Concomitant]
  2. LORAZEPAM [Concomitant]
  3. METOPROLOL [Concomitant]
  4. LIPITOR [Concomitant]
  5. ALLOPURINOL [Concomitant]
  6. INSULIN [Concomitant]
  7. PREDNISONE [Concomitant]
  8. AVAPRO [Concomitant]
  9. FUROSEMIDE [Concomitant]
  10. WINRHO [Suspect]
     Indication: IDIOPATHIC THROMBOCYTOPENIC PURPURA
     Dosage: (19.8 UG/KG TOTAL INTRAVENOUS (NOT OTHERWISE SPECIFIED))
     Route: 042
     Dates: start: 20080805, end: 20080805
  11. WINRHO [Suspect]
     Indication: IDIOPATHIC THROMBOCYTOPENIC PURPURA
     Dosage: (29.7 UG/KG INTRAVENOUS (NOT OTHERWISE SPECIFIED))
     Route: 042
     Dates: start: 20080805, end: 20080805

REACTIONS (11)
  - NAUSEA [None]
  - RENAL FAILURE [None]
  - HYPOTENSION [None]
  - BACK PAIN [None]
  - VOMITING [None]
  - BLOOD PRESSURE SYSTOLIC INCREASED [None]
  - BLOOD PRESSURE DECREASED [None]
  - HAEMOLYSIS [None]
  - CHILLS [None]
  - HAEMATURIA [None]
  - HAEMOGLOBIN DECREASED [None]
